FAERS Safety Report 7808712 (Version 4)
Quarter: 2014Q2

REPORT INFORMATION
  Report Type: Spontaneous
  Country: US (occurrence: US)
  Receive Date: 20110211
  Receipt Date: 20140401
  Transmission Date: 20141212
  Serious: Yes (Hospitalization, Other)
  Sender: FDA-Public Use
  Company Number: US-JNJFOC-20110201040

PATIENT
  Age: 68 Year
  Sex: Male
  Weight: 80 kg

DRUGS (12)
  1. REMICADE [Suspect]
     Indication: RHEUMATOID ARTHRITIS
     Route: 042
     Dates: start: 20090922
  2. REMICADE [Suspect]
     Indication: RHEUMATOID ARTHRITIS
     Dosage: DOSE OG INFLIXIMAB WAS REPORTED AS 300-500 MG
     Route: 042
     Dates: start: 20101006, end: 20101006
  3. METHOTREXATE [Suspect]
     Indication: RHEUMATOID ARTHRITIS
     Route: 048
     Dates: start: 20080923, end: 20101120
  4. PLAQUENIL [Concomitant]
     Indication: RHEUMATOID ARTHRITIS
     Route: 048
     Dates: start: 20080723
  5. MIRAPEX [Concomitant]
     Route: 065
     Dates: start: 20050502
  6. SINEMET [Concomitant]
     Indication: PARKINSON^S DISEASE
     Dosage: DOSE 25-100 MG??DAILY 1.5 TABLETS 30 MINUTES PRIOR TO 60 MINUTES AFTER A MEAL THREE TIMES A DAILY
     Route: 065
     Dates: start: 20080924
  7. FOLIC ACID [Concomitant]
     Route: 065
     Dates: start: 20080923, end: 20110505
  8. ADVIL [Concomitant]
     Route: 065
  9. CALCIUM AND VITAMIN D [Concomitant]
     Dosage: CALCIUM 600 AND VITAMIN D 200
     Route: 065
  10. VITAMIN A AND D [Concomitant]
     Route: 065
  11. VIAGRA [Concomitant]
     Route: 065
     Dates: start: 20100119
  12. VICODIN [Concomitant]
     Dosage: DOSE 5-500 (UNITS UNSPECIFIED)
     Route: 065
     Dates: start: 20080603

REACTIONS (2)
  - Histoplasmosis [Recovered/Resolved]
  - Pneumonia [Unknown]
